FAERS Safety Report 19680327 (Version 1)
Quarter: 2021Q3

REPORT INFORMATION
  Report Type: Spontaneous
  Country: FR (occurrence: FR)
  Receive Date: 20210810
  Receipt Date: 20210810
  Transmission Date: 20211014
  Serious: Yes (Hospitalization)
  Sender: FDA-Public Use
  Company Number: FR-PFIZER INC-202100966761

PATIENT
  Age: 84 Year
  Sex: Female
  Weight: 50 kg

DRUGS (2)
  1. IBRANCE [Suspect]
     Active Substance: PALBOCICLIB
     Indication: MUCINOUS BREAST CARCINOMA
     Dosage: UNK
     Route: 048
     Dates: start: 202002, end: 202106
  2. LETROZOLE. [Concomitant]
     Active Substance: LETROZOLE
     Indication: MUCINOUS BREAST CARCINOMA
     Dosage: UNK
     Route: 048
     Dates: start: 202002

REACTIONS (1)
  - Acute kidney injury [Recovering/Resolving]

NARRATIVE: CASE EVENT DATE: 20210610
